FAERS Safety Report 14169174 (Version 8)
Quarter: 2019Q3

REPORT INFORMATION
  Report Type: Report from Study
  Country: US (occurrence: US)
  Receive Date: 20171107
  Receipt Date: 20190726
  Transmission Date: 20191004
  Serious: Yes (Hospitalization)
  Sender: FDA-Public Use
  Company Number: US-ACTELION-A-NJ2017-162166

PATIENT
  Age: 54 Year
  Sex: Male
  Weight: 88.89 kg

DRUGS (7)
  1. VELETRI [Suspect]
     Active Substance: EPOPROSTENOL
     Indication: PULMONARY ARTERIAL HYPERTENSION
     Dosage: 23 NG/KG, PER MIN
     Route: 042
  2. VELETRI [Suspect]
     Active Substance: EPOPROSTENOL
     Dosage: UNK
     Route: 042
  3. VELETRI [Suspect]
     Active Substance: EPOPROSTENOL
     Dosage: 23 NG/KG, PER MIN
     Route: 042
  4. TRACLEER [Concomitant]
     Active Substance: BOSENTAN
     Indication: PULMONARY ARTERIAL HYPERTENSION
     Route: 048
  5. AMLODIPINE [Concomitant]
     Active Substance: AMLODIPINE BESYLATE
  6. ADCIRCA [Concomitant]
     Active Substance: TADALAFIL
  7. WARFARIN [Concomitant]
     Active Substance: WARFARIN

REACTIONS (21)
  - Tachycardia [Unknown]
  - Pain in extremity [Not Recovered/Not Resolved]
  - Arrhythmia [Unknown]
  - Diarrhoea [Unknown]
  - Palpitations [Unknown]
  - Pain in jaw [Unknown]
  - Rash [Not Recovered/Not Resolved]
  - Chest pain [Unknown]
  - Condition aggravated [Unknown]
  - Cardiac output increased [Unknown]
  - Thyroidectomy [Unknown]
  - Heart rate increased [Unknown]
  - Presyncope [Unknown]
  - Paraesthesia [Unknown]
  - Hypoaesthesia [Unknown]
  - Hypotension [Unknown]
  - Dyspnoea exertional [Unknown]
  - Flushing [Not Recovered/Not Resolved]
  - Muscle spasms [Unknown]
  - Parathyroidectomy [Unknown]
  - Fatigue [Unknown]

NARRATIVE: CASE EVENT DATE: 20171020
